FAERS Safety Report 6394665-5 (Version None)
Quarter: 2009Q4

REPORT INFORMATION
  Report Type: 
  Country: None (occurrence: None)
  Receive Date: 20091009
  Receipt Date: 20091001
  Transmission Date: 20100525
  Serious: Yes (Other)
  Sender: FDA-Public Use
  Company Number: US-JNJFOC-20091000826

PATIENT
  Sex: Female
  Weight: 47.17 kg

DRUGS (1)
  1. RISPERDAL [Suspect]
     Indication: INSOMNIA
     Dosage: 1-2 MG SOLUTION
     Route: 048

REACTIONS (8)
  - ANXIETY [None]
  - DECREASED APPETITE [None]
  - DELUSION [None]
  - DRUG INEFFECTIVE [None]
  - MANIA [None]
  - MENTAL DISORDER [None]
  - MUSCLE SPASMS [None]
  - OFF LABEL USE [None]
